FAERS Safety Report 8013584-1 (Version None)
Quarter: 2011Q4

REPORT INFORMATION
  Report Type: 
  Country: None (occurrence: None)
  Receive Date: 20111229
  Receipt Date: 20111216
  Transmission Date: 20120403
  Serious: Yes (Hospitalization)
  Sender: FDA-Public Use
  Company Number: US-UCBSA-047977

PATIENT
  Age: 47 Year
  Sex: Female
  Weight: 101 kg

DRUGS (15)
  1. AMITRIPTYLINE [Concomitant]
     Dosage: AT BED TIME
     Route: 048
  2. NEXIUM [Concomitant]
     Route: 048
  3. AMITRIPTYLINE [Concomitant]
     Dosage: AT BEDTIME
     Route: 048
  4. POTASSIUM CHLORIDE [Concomitant]
     Route: 048
  5. CIMZIA [Suspect]
     Indication: CROHN'S DISEASE
     Route: 058
     Dates: start: 20090706
  6. BIFERA RX [Concomitant]
     Dosage: 22MG-6MG-1MG-25MCG
     Route: 048
  7. LOVAZA [Concomitant]
     Route: 048
  8. CO Q [Concomitant]
     Indication: MIGRAINE
     Dosage: 10 200 MG  -
     Route: 048
  9. PREGABALIN [Concomitant]
     Route: 048
  10. AMITRIPTYLINE [Concomitant]
     Dosage: 30 MG 3 TIMES AT BED TIME
     Route: 048
  11. LASIX [Concomitant]
     Route: 048
  12. TRICOR [Concomitant]
     Route: 048
  13. AMITRIPTYLINE [Concomitant]
     Dosage: AT BED TIME
     Route: 048
  14. VICODIN ES [Concomitant]
     Indication: PAIN
     Dosage: 7.5-750 MG, 1 TABLET EVERY 4 HOURS AS NEEDED, DO NOT EXCEED 5 PILLS A DAY
     Route: 048
  15. VITAMIN B-12 [Concomitant]
     Dosage: 1000 MCG/ML - 1 ML
     Route: 030

REACTIONS (1)
  - SURGERY [None]
